FAERS Safety Report 7293535-8 (Version None)
Quarter: 2011Q1

REPORT INFORMATION
  Report Type: 
  Country: None (occurrence: None)
  Receive Date: 20110203
  Receipt Date: 20110118
  Transmission Date: 20110831
  Serious: Yes (Death)
  Sender: FDA-Public Use
  Company Number: B0694674A

PATIENT
  Age: 31 Year
  Sex: Female

DRUGS (5)
  1. ALPRAZOLAM [Suspect]
     Dosage: ORAL
     Route: 048
  2. METHADONE HCL [Suspect]
     Dosage: ORAL
     Route: 048
  3. LAMOTRIGINE [Suspect]
  4. TRAZODONE HCL [Suspect]
  5. ZOLPIDEM (FORMULATION UNKNOWN) (ZOLPIDEM) [Suspect]

REACTIONS (2)
  - DRUG ABUSE [None]
  - CARDIO-RESPIRATORY ARREST [None]
